FAERS Safety Report 6815763-5 (Version None)
Quarter: 2010Q3

REPORT INFORMATION
  Report Type: 
  Country: None (occurrence: None)
  Receive Date: 20100704
  Receipt Date: 20100628
  Transmission Date: 20110219
  Serious: Yes (Hospitalization)
  Sender: FDA-Public Use
  Company Number: GB-BAUSCH-2010BL003570

PATIENT
  Age: 78 Year
  Sex: Male

DRUGS (8)
  1. PREDNISOLONE [Suspect]
     Indication: TEMPORAL ARTERITIS
     Route: 048
     Dates: start: 20100301, end: 20100604
  2. ALENDRONIC ACID [Concomitant]
     Indication: PRODUCT USED FOR UNKNOWN INDICATION
     Route: 048
  3. CALCICHEW D3 /UNK/ [Concomitant]
     Indication: PRODUCT USED FOR UNKNOWN INDICATION
     Route: 048
  4. OMEPRAZOLE [Concomitant]
     Indication: PRODUCT USED FOR UNKNOWN INDICATION
     Route: 048
  5. ACETAMINOPHEN [Concomitant]
     Indication: PRODUCT USED FOR UNKNOWN INDICATION
     Route: 048
  6. VALSARTAN [Concomitant]
     Indication: PRODUCT USED FOR UNKNOWN INDICATION
     Route: 048
  7. WARFARIN [Concomitant]
     Indication: ATRIAL FIBRILLATION
     Route: 048
  8. WARFARIN [Concomitant]
     Indication: CARDIAC PACEMAKER INSERTION
     Route: 048

REACTIONS (5)
  - ADRENAL SUPPRESSION [None]
  - BLOOD PRESSURE DECREASED [None]
  - DIZZINESS [None]
  - MOBILITY DECREASED [None]
  - WITHDRAWAL SYNDROME [None]
